FAERS Safety Report 9465490 (Version 4)
Quarter: 2013Q4

REPORT INFORMATION
  Report Type: Spontaneous
  Country: JP (occurrence: JP)
  Receive Date: 20130820
  Receipt Date: 20131112
  Transmission Date: 20140711
  Serious: Yes (Hospitalization, Other)
  Sender: FDA-Public Use
  Company Number: PHHY2013JP089217

PATIENT
  Sex: Female
  Weight: 51 kg

DRUGS (13)
  1. FEMARA [Suspect]
     Indication: BREAST CANCER STAGE II
     Dosage: 2.5 MG, DAILY
     Route: 048
     Dates: start: 20130322
  2. HERCEPTIN [Suspect]
     Indication: BREAST CANCER
     Dosage: 400 MG/KG, UNK
     Route: 041
     Dates: start: 20130321, end: 20130321
  3. HERCEPTIN [Suspect]
     Dosage: 300 MG/KG, UNK
     Route: 041
     Dates: start: 20130412, end: 20130510
  4. HERCEPTIN [Suspect]
     Dosage: 400 MG/KG, UNK
     Route: 041
     Dates: start: 20130719, end: 20130719
  5. TEGRETOL [Concomitant]
     Dosage: 6 DF, UNK
     Route: 048
  6. RIVOTRIL [Concomitant]
     Dosage: 3 DF, UNK
     Route: 048
  7. TRYPTANOL [Concomitant]
     Dosage: 3 DF, UNK
     Route: 048
  8. MULTIVIT [Concomitant]
     Dosage: 2 DF, UNK
     Route: 048
  9. MYSLEE [Concomitant]
     Dosage: 2 DF, UNK
     Route: 048
  10. BENZALIN [Concomitant]
     Dosage: 2 DF, UNK
     Route: 048
  11. PAROXETINE//PAROXETINE HYDROCHLORIDE [Concomitant]
     Dosage: 2 DF, UNK
     Route: 048
  12. ZYPREXA [Concomitant]
     Dosage: 1 DF, UNK
     Route: 048
  13. LYRICA [Concomitant]
     Dosage: 4 DF, UNK
     Route: 048

REACTIONS (16)
  - Interstitial lung disease [Recovering/Resolving]
  - Pyrexia [Recovering/Resolving]
  - Cough [Unknown]
  - White blood cell count increased [Unknown]
  - C-reactive protein increased [Unknown]
  - Aspartate aminotransferase increased [Unknown]
  - Alanine aminotransferase increased [Unknown]
  - Blood alkaline phosphatase increased [Unknown]
  - Gamma-glutamyltransferase increased [Unknown]
  - Blood lactate dehydrogenase increased [Unknown]
  - VIIth nerve paralysis [Recovering/Resolving]
  - Blood urea decreased [Unknown]
  - Haematocrit decreased [Unknown]
  - Red blood cell count decreased [Unknown]
  - Haemoglobin decreased [Unknown]
  - Blood bilirubin increased [Unknown]
